FAERS Safety Report 14786672 (Version 5)
Quarter: 2020Q3

REPORT INFORMATION
  Report Type: Spontaneous
  Country: US (occurrence: US)
  Receive Date: 20180420
  Receipt Date: 20200805
  Transmission Date: 20201102
  Serious: Yes (Hospitalization)
  Sender: FDA-Public Use
  Company Number: US-ACTELION-A-US2018-170722

PATIENT
  Age: 7 Year
  Sex: Male

DRUGS (1)
  1. TRACLEER [Suspect]
     Active Substance: BOSENTAN
     Indication: PULMONARY ARTERIAL HYPERTENSION
     Dosage: 31.25 MG, BID
     Route: 048
     Dates: start: 20160319

REACTIONS (4)
  - Disease complication [Unknown]
  - Influenza [Not Recovered/Not Resolved]
  - Hospitalisation [Unknown]
  - Lung disorder [Unknown]

NARRATIVE: CASE EVENT DATE: 20180409
